FAERS Safety Report 25924129 (Version 1)
Quarter: 2025Q4

REPORT INFORMATION
  Report Type: Spontaneous
  Country: US (occurrence: None)
  Receive Date: 20251011
  Receipt Date: 20251011
  Transmission Date: 20260118
  Serious: Yes (Hospitalization)
  Sender: FDA-CTU
  Company Number: None

PATIENT
  Age: 44 Year
  Sex: Female

DRUGS (20)
  1. OZEMPIC [Suspect]
     Active Substance: SEMAGLUTIDE
     Indication: Hyperglycaemia
  2. ACETAMINOPHEN [Concomitant]
     Active Substance: ACETAMINOPHEN
  3. AMLODIPINE [Concomitant]
     Active Substance: AMLODIPINE BESYLATE
  4. ATORVASTATIN [Concomitant]
     Active Substance: ATORVASTATIN
  5. budesonide - formoterol, [Concomitant]
  6. CARVEDILOL [Concomitant]
     Active Substance: CARVEDILOL
  7. DESVENLAFAXINE [Concomitant]
     Active Substance: DESVENLAFAXINE
  8. ELIQUIS [Concomitant]
     Active Substance: APIXABAN
  9. ETONOGESTREL [Concomitant]
     Active Substance: ETONOGESTREL
  10. FAMOTIDINE [Concomitant]
     Active Substance: FAMOTIDINE
  11. FERROUS SULFATE [Concomitant]
     Active Substance: FERROUS SULFATE
  12. FLUTICASONE PROPIONATE [Concomitant]
     Active Substance: FLUTICASONE PROPIONATE
  13. HYDROXYZINE [Concomitant]
     Active Substance: HYDROXYZINE HYDROCHLORIDE
  14. LIDOCAINE [Concomitant]
     Active Substance: LIDOCAINE
  15. LURASIDONE [Concomitant]
     Active Substance: LURASIDONE
  16. nystatin pwd [Concomitant]
  17. ONDANSETRON [Concomitant]
     Active Substance: ONDANSETRON
  18. DOCUSATE SODIUM\SENNOSIDES [Concomitant]
     Active Substance: DOCUSATE SODIUM\SENNOSIDES
  19. TRAZODONE [Concomitant]
     Active Substance: TRAZODONE HYDROCHLORIDE
  20. conour next meter [Concomitant]

REACTIONS (9)
  - Fall [None]
  - Dysstasia [None]
  - Haematoma [None]
  - Muscle disorder [None]
  - Decreased appetite [None]
  - Abnormal loss of weight [None]
  - Asthenia [None]
  - Brain injury [None]
  - Hypoglycaemia [None]

NARRATIVE: CASE EVENT DATE: 20250922
